FAERS Safety Report 26012517 (Version 1)
Quarter: 2025Q4

REPORT INFORMATION
  Report Type: Spontaneous
  Country: CN (occurrence: CN)
  Receive Date: 20251107
  Receipt Date: 20251107
  Transmission Date: 20260118
  Serious: Yes (Hospitalization, Other)
  Sender: Kenvue
  Company Number: CN-KENVUE-20251012201

PATIENT

DRUGS (2)
  1. IBUPROFEN [Interacting]
     Active Substance: IBUPROFEN
     Indication: Pyrexia
     Dosage: 10 MILLILITER
     Route: 048
     Dates: start: 20230422
  2. CEFIXIME [Interacting]
     Active Substance: CEFIXIME
     Indication: Pyrexia
     Dosage: 100 MILLIGRAM
     Route: 048
     Dates: start: 20230422

REACTIONS (3)
  - Drug interaction [Unknown]
  - Incorrect dose administered [Unknown]
  - Toxic epidermal necrolysis [Recovering/Resolving]

NARRATIVE: CASE EVENT DATE: 20230401
